FAERS Safety Report 8268777-5 (Version None)
Quarter: 2012Q2

REPORT INFORMATION
  Report Type: 
  Country: None (occurrence: None)
  Receive Date: 20120409
  Receipt Date: 20120409
  Transmission Date: 20120825
  Serious: Yes (Other)
  Sender: FDA-Public Use
  Company Number: None

PATIENT
  Age: 64 Year
  Sex: Female
  Weight: 51.709 kg

DRUGS (1)
  1. CITALOPRAM HYDROBROMIDE [Suspect]
     Indication: ANXIETY
     Dosage: 40MG
     Dates: start: 20060101, end: 20120101

REACTIONS (6)
  - UNEVALUABLE EVENT [None]
  - BALANCE DISORDER [None]
  - MULTIPLE SCLEROSIS [None]
  - DIZZINESS [None]
  - HEADACHE [None]
  - GAIT DISTURBANCE [None]
